FAERS Safety Report 8014375-8 (Version None)
Quarter: 2011Q4

REPORT INFORMATION
  Report Type: 
  Country: None (occurrence: None)
  Receive Date: 20111229
  Receipt Date: 20111219
  Transmission Date: 20120403
  Serious: Yes (Hospitalization)
  Sender: FDA-Public Use
  Company Number: PHEH2011US010713

PATIENT
  Sex: Male

DRUGS (9)
  1. HYDROCHLOROTHIAZIDE [Concomitant]
     Dosage: UNK UKN, UNK
  2. ROSUVASTATIN [Concomitant]
     Dosage: UNK UKN, UNK
  3. LOSARTAN POTASSIUM [Concomitant]
     Dosage: UNK UKN, UNK
  4. FLUCONAZOLE [Concomitant]
     Dosage: UNK UKN, UNK
  5. GLIPIZIDE [Concomitant]
     Dosage: UNK UKN, UNK
  6. CIPROFLOXACIN [Concomitant]
     Dosage: UNK UKN, UNK
  7. ACYCLOVIR [Concomitant]
     Dosage: UNK UKN, UNK
  8. GLEEVEC [Suspect]
     Indication: CHRONIC MYELOID LEUKAEMIA
     Dosage: 600 MG, DAILY
     Route: 048
  9. METFORMIN HCL [Concomitant]
     Dosage: UNK UKN, UNK

REACTIONS (5)
  - PANCYTOPENIA [None]
  - PYREXIA [None]
  - RASH [None]
  - RENAL FAILURE [None]
  - INFECTION [None]
